FAERS Safety Report 13193395 (Version 2)
Quarter: 2017Q2

REPORT INFORMATION
  Report Type: Spontaneous
  Country: JP (occurrence: JP)
  Receive Date: 20170207
  Receipt Date: 20170403
  Transmission Date: 20170830
  Serious: Yes (Other)
  Sender: FDA-Public Use
  Company Number: JP-OTSUKA-2017_002419AA

PATIENT
  Age: 65 Year
  Sex: Female

DRUGS (3)
  1. SAMSCA [Suspect]
     Active Substance: TOLVAPTAN
     Indication: POLYURIA
     Dosage: 7.5 MG, QD
     Route: 048
     Dates: start: 20150906, end: 20150911
  2. FUROSEMIDE. [Concomitant]
     Active Substance: FUROSEMIDE
     Indication: POLYURIA
     Dosage: UNK
     Route: 042
  3. CARPERITIDE [Concomitant]
     Active Substance: CARPERITIDE
     Indication: POLYURIA
     Dosage: UNK
     Route: 042

REACTIONS (1)
  - Low cardiac output syndrome [Not Recovered/Not Resolved]

NARRATIVE: CASE EVENT DATE: 20150911
